FAERS Safety Report 13468626 (Version 1)
Quarter: 2017Q2

REPORT INFORMATION
  Report Type: Spontaneous
  Country: US (occurrence: US)
  Receive Date: 20170421
  Receipt Date: 20170421
  Transmission Date: 20170830
  Serious: Yes (Hospitalization)
  Sender: FDA-Public Use
  Company Number: US-BRISTOL-MYERS SQUIBB COMPANY-BMS-2017-033028

PATIENT
  Sex: Male

DRUGS (3)
  1. TYLENOL [Concomitant]
     Active Substance: ACETAMINOPHEN
     Indication: HEADACHE
     Dosage: 500 MG, UNK
     Route: 065
  2. OPDIVO [Suspect]
     Active Substance: NIVOLUMAB
     Indication: MALIGNANT MELANOMA
     Dosage: UNK
     Route: 042
     Dates: start: 201701
  3. YERVOY [Suspect]
     Active Substance: IPILIMUMAB
     Indication: MALIGNANT MELANOMA
     Dosage: UNK
     Route: 042
     Dates: start: 2013

REACTIONS (16)
  - Pyrexia [Unknown]
  - Headache [Unknown]
  - Weight decreased [Unknown]
  - Mood altered [Unknown]
  - Muscular weakness [Unknown]
  - Gastric disorder [Unknown]
  - Feeling cold [Unknown]
  - Arthralgia [Unknown]
  - Bone pain [Unknown]
  - Fatigue [Unknown]
  - Confusional state [Unknown]
  - Irritability [Unknown]
  - Dysstasia [Unknown]
  - Nausea [Unknown]
  - Asthenia [Unknown]
  - Vomiting [Unknown]
